FAERS Safety Report 8594568-1 (Version None)
Quarter: 2012Q3

REPORT INFORMATION
  Report Type: 
  Country: None (occurrence: None)
  Receive Date: 20120815
  Receipt Date: 20120810
  Transmission Date: 20120928
  Serious: Yes (Hospitalization)
  Sender: FDA-Public Use
  Company Number: FR-ELI_LILLY_AND_COMPANY-FR201208003220

PATIENT
  Sex: Female

DRUGS (12)
  1. CANDESARTAN CILEXETIL AND HYDROCHLOROTHIAZIDE [Concomitant]
     Dosage: 12.5 MG, QD
  2. CYMBALTA [Suspect]
     Dosage: 60 MG, QD
     Route: 048
     Dates: end: 20120628
  3. ISOPTIN [Concomitant]
     Dosage: 120 MG, BID
  4. CRESTOR [Concomitant]
     Dosage: 10 MG, QD
  5. CANDESARTAN CILEXETIL AND HYDROCHLOROTHIAZIDE [Concomitant]
     Dosage: 8 MG, QD
  6. EXELON [Concomitant]
     Dosage: 9.5 MG, QD
  7. CRESTOR [Concomitant]
     Dosage: 60 MG, QD
  8. ASPIRIN [Concomitant]
     Dosage: 75 MG, QD
     Dates: start: 20120617, end: 20120617
  9. PLAVIX [Concomitant]
     Dosage: 75 MG, UNK
     Dates: start: 20120617, end: 20120617
  10. FEMARA [Concomitant]
     Dosage: 2.5 MG, QD
  11. PREVISCAN [Concomitant]
     Indication: ARRHYTHMIA
     Dosage: 20 MG, QD
     Dates: start: 20120617, end: 20120617
  12. NITROGLYCERIN [Concomitant]
     Indication: PAIN
     Dosage: UNK, PRN

REACTIONS (4)
  - INTERNATIONAL NORMALISED RATIO INCREASED [None]
  - GASTRIC ULCER HAEMORRHAGE [None]
  - ANAEMIA [None]
  - DIVERTICULUM [None]
